FAERS Safety Report 24009736 (Version 1)
Quarter: 2024Q2

REPORT INFORMATION
  Report Type: Spontaneous
  Country: US (occurrence: US)
  Receive Date: 20240625
  Receipt Date: 20240625
  Transmission Date: 20240716
  Serious: Yes (Hospitalization, Other)
  Sender: FDA-Public Use
  Company Number: US-Vifor (International) Inc.-VIT-2024-05533

PATIENT
  Age: 86 Year
  Sex: Male
  Weight: 60 kg

DRUGS (1)
  1. MIRCERA [Suspect]
     Active Substance: METHOXY POLYETHYLENE GLYCOL-EPOETIN BETA
     Indication: Anaemia
     Route: 040
     Dates: start: 20240613, end: 20240613

REACTIONS (5)
  - Drug hypersensitivity [Unknown]
  - Hot flush [Unknown]
  - Back pain [Unknown]
  - Respiratory rate increased [Unknown]
  - Blood pressure increased [Unknown]

NARRATIVE: CASE EVENT DATE: 20240613
